FAERS Safety Report 8212427-0 (Version None)
Quarter: 2012Q1

REPORT INFORMATION
  Report Type: 
  Country: None (occurrence: None)
  Receive Date: 20120315
  Receipt Date: 20120309
  Transmission Date: 20120608
  Serious: Yes (Hospitalization)
  Sender: FDA-Public Use
  Company Number: US-BAYER-200942916NA

PATIENT
  Age: 17 Year
  Sex: Female
  Weight: 41.818 kg

DRUGS (11)
  1. YASMIN [Suspect]
     Route: 048
  2. ZITHROMAX [Concomitant]
     Indication: SINUSITIS
     Dosage: UNK
     Dates: start: 20080501
  3. YAZ [Suspect]
     Dosage: UNK
     Dates: start: 20070709, end: 20071004
  4. DIFFERIN [Concomitant]
  5. FINACEA [Concomitant]
  6. SPIRONOLACTONE [Concomitant]
  7. ALDACTONE [Concomitant]
  8. ACETAMINOPHEN [Concomitant]
     Indication: HEADACHE
  9. YAZ [Suspect]
     Indication: CONTRACEPTION
     Dosage: UNK
     Route: 048
     Dates: start: 20070601, end: 20080519
  10. FLOMAX [Concomitant]
     Indication: NAUSEA
     Dosage: UNK
     Dates: start: 20080501
  11. PHENERGAN HCL [Concomitant]
     Indication: NAUSEA
     Dosage: UNK
     Dates: start: 20080501

REACTIONS (3)
  - INJURY [None]
  - TRANSVERSE SINUS THROMBOSIS [None]
  - THROMBOSIS [None]
